FAERS Safety Report 17060255 (Version 3)
Quarter: 2019Q4

REPORT INFORMATION
  Report Type: Spontaneous
  Country: BE (occurrence: BE)
  Receive Date: 20191121
  Receipt Date: 20191227
  Transmission Date: 20200122
  Serious: Yes (Death, Hospitalization, Other)
  Sender: FDA-Public Use
  Company Number: BE-ASTRAZENECA-2019SF63562

PATIENT
  Age: 845 Month
  Sex: Female
  Weight: 77 kg

DRUGS (21)
  1. BUDESONIDE. [Concomitant]
     Active Substance: BUDESONIDE
     Dosage: 0.5MG/ML 3X1ML DAILY
  2. SPIRIVA [Concomitant]
     Active Substance: TIOTROPIUM BROMIDE MONOHYDRATE
     Dosage: 1X2 DOSES DAILY WITH AEROCHAMBER SPACER IN THE MORNING
  3. STEOVIT FORTE [Concomitant]
     Dosage: 1000/880 MG 1X1 DAILY
  4. MYSOLINE [Concomitant]
     Active Substance: PRIMIDONE
     Dosage: 50MG 3X1 DAILY
  5. PANTOMED [Concomitant]
     Dosage: 40MG 1X1 DAILY
  6. GABAPENTINE [Concomitant]
     Active Substance: GABAPENTIN
     Dosage: 300MG 2X1 DAILY
  7. INUVAIR [Concomitant]
     Active Substance: BECLOMETHASONE DIPROPIONATE\FORMOTEROL FUMARATE
     Dosage: 200/6 INHALER 1X2 DOSES DAILY WITH AEROCHAMBER SPACER IN THE AFTERNOON
  8. SERETIDE [Concomitant]
     Active Substance: FLUTICASONE PROPIONATE\SALMETEROL XINAFOATE
     Dosage: 25/250MCG 2X2 DOSES DAILY WITH AEROCHAMBER SPACER IN THE MORNING + EVENING
  9. SIPRALEXA [Concomitant]
     Active Substance: ESCITALOPRAM OXALATE
     Dosage: 10MG 1X1 DAILY
  10. MOMETASONE [Concomitant]
     Active Substance: MOMETASONE
     Dosage: 50MCG 2X2 DOSES DAILY
  11. LASIX [Concomitant]
     Active Substance: FUROSEMIDE
     Dosage: 40MG 1X0.5 DAILY
  12. ALDACTAZINE [Concomitant]
     Active Substance: ALTHIAZIDE\SPIRONOLACTONE
     Dosage: 25/15MG 1X1 DAILY
  13. VENTOLIN [Concomitant]
     Active Substance: ALBUTEROL SULFATE
     Dosage: INHALER 1 DOSE EXTRA IF NEEDED WITH AEROCHAMBER SPACER
  14. ATROVENT [Concomitant]
     Active Substance: IPRATROPIUM BROMIDE
     Dosage: 0.25MG/2ML 3X20 DROPS DAILY
  15. FASENRA [Suspect]
     Active Substance: BENRALIZUMAB
     Indication: ASTHMA
     Route: 058
     Dates: start: 20181122
  16. HYDRALAZINE [Concomitant]
     Active Substance: HYDRALAZINE HYDROCHLORIDE
     Dosage: 50MG 2X1 DAILY
  17. EUSAPRIM [Concomitant]
     Active Substance: SULFAMETHOXAZOLE\TRIMETHOPRIM
     Dosage: 960MG 1X1 DAILY ON MONDAY-WEDNESDAY-FRIDAY
  18. TEGRETOL [Concomitant]
     Active Substance: CARBAMAZEPINE
     Dosage: 200MG 2X1 DAILY
  19. RANITIDINE. [Concomitant]
     Active Substance: RANITIDINE
     Dosage: 150MG 1X1 DAILY
  20. COZAAR [Concomitant]
     Active Substance: LOSARTAN POTASSIUM
     Dosage: 50MG 1X1 DAILY
  21. MEDROL [Concomitant]
     Active Substance: METHYLPREDNISOLONE

REACTIONS (3)
  - Cerebral haemorrhage [Fatal]
  - Dyspnoea exertional [Unknown]
  - Asthma [Unknown]

NARRATIVE: CASE EVENT DATE: 201812
